FAERS Safety Report 7484077-5 (Version None)
Quarter: 2011Q2

REPORT INFORMATION
  Report Type: 
  Country: None (occurrence: None)
  Receive Date: 20110513
  Receipt Date: 20110513
  Transmission Date: 20111010
  Serious: Yes (Other)
  Sender: FDA-Public Use
  Company Number: None

PATIENT
  Age: 69 Year
  Sex: Female
  Weight: 63.5036 kg

DRUGS (1)
  1. MONISTAT 3 [Suspect]
     Indication: FUNGAL INFECTION
     Dosage: 200 MG ONCE A DAY VAG
     Route: 067
     Dates: start: 20110510, end: 20110512

REACTIONS (4)
  - PRODUCT QUALITY ISSUE [None]
  - BURNING SENSATION [None]
  - PAIN [None]
  - INSOMNIA [None]
